FAERS Safety Report 20862828 (Version 1)
Quarter: 2022Q2

REPORT INFORMATION
  Report Type: Spontaneous
  Country: US (occurrence: US)
  Receive Date: 20220523
  Receipt Date: 20220523
  Transmission Date: 20220721
  Serious: Yes (Hospitalization, Other)
  Sender: FDA-Public Use
  Company Number: US-ELI_LILLY_AND_COMPANY-US202205005150

PATIENT
  Age: 49 Year
  Sex: Female

DRUGS (1)
  1. HUMALOG MIX75/25 [Suspect]
     Active Substance: INSULIN LISPRO
     Indication: Product used for unknown indication
     Dosage: UNK UNK, UNKNOWN
     Route: 065

REACTIONS (11)
  - COVID-19 [Unknown]
  - Blood glucose decreased [Unknown]
  - Cerebrovascular accident [Unknown]
  - Systemic lupus erythematosus [Unknown]
  - Thrombosis [Unknown]
  - Illness [Unknown]
  - Diabetes mellitus inadequate control [Unknown]
  - Hypoaesthesia [Unknown]
  - Hypertension [Unknown]
  - Blood cholesterol increased [Unknown]
  - Fibromyalgia [Unknown]

NARRATIVE: CASE EVENT DATE: 20210911
